FAERS Safety Report 8272576-8 (Version None)
Quarter: 2012Q2

REPORT INFORMATION
  Report Type: 
  Country: None (occurrence: None)
  Receive Date: 20120410
  Receipt Date: 20120402
  Transmission Date: 20120825
  Serious: Yes (Hospitalization, Disabling, Other)
  Sender: FDA-Public Use
  Company Number: US-MERCK-1201USA00338

PATIENT
  Age: 62 Year
  Sex: Female

DRUGS (1)
  1. FOSAMAX [Suspect]
     Indication: OSTEOPOROSIS
     Route: 048
     Dates: start: 19970101, end: 20100801

REACTIONS (13)
  - FEMUR FRACTURE [None]
  - CHRONIC OBSTRUCTIVE PULMONARY DISEASE [None]
  - TOOTH DISORDER [None]
  - TOOTH EXTRACTION [None]
  - ATRIAL FIBRILLATION [None]
  - PNEUMONIA [None]
  - JAW DISORDER [None]
  - GASTROOESOPHAGEAL REFLUX DISEASE [None]
  - INFECTION [None]
  - HYPERTENSION [None]
  - DRUG INEFFECTIVE [None]
  - OSTEONECROSIS OF JAW [None]
  - ADVERSE EVENT [None]
